FAERS Safety Report 25372214 (Version 1)
Quarter: 2025Q2

REPORT INFORMATION
  Report Type: Spontaneous
  Country: US (occurrence: US)
  Receive Date: 20250529
  Receipt Date: 20250529
  Transmission Date: 20250716
  Serious: No
  Sender: DR REDDYS
  Company Number: US-DRL-USA-USA/2025/05/007305

PATIENT
  Age: 95 Year
  Sex: Female
  Weight: 39 kg

DRUGS (1)
  1. COLCHICINE [Suspect]
     Active Substance: COLCHICINE
     Indication: Gout
     Dosage: TWO TABLETS UPON ARRIVING HOME ON SUNDAY, FOLLOWED BY ONE MORE AN HOUR LATER, AS INSTRUCTED.
     Route: 048
     Dates: start: 20250511

REACTIONS (3)
  - Diarrhoea [Not Recovered/Not Resolved]
  - Abdominal pain upper [Not Recovered/Not Resolved]
  - Arthralgia [Recovered/Resolved]

NARRATIVE: CASE EVENT DATE: 20250511
